FAERS Safety Report 22062569 (Version 2)
Quarter: 2025Q1

REPORT INFORMATION
  Report Type: Spontaneous
  Country: US (occurrence: US)
  Receive Date: 20230306
  Receipt Date: 20250107
  Transmission Date: 20250409
  Serious: Yes (Other)
  Sender: CSL BEHRING
  Company Number: US-BEH-2023155859

PATIENT
  Sex: Male

DRUGS (8)
  1. IDELVION [Suspect]
     Active Substance: COAGULATION FACTOR IX RECOMBINANT HUMAN
     Indication: Factor IX deficiency
     Dosage: 6500 INTERNATIONAL UNIT, QOW
     Route: 042
     Dates: start: 20220104
  2. IDELVION [Suspect]
     Active Substance: COAGULATION FACTOR IX RECOMBINANT HUMAN
     Indication: Factor IX deficiency
     Dosage: 6500 INTERNATIONAL UNIT, QOW
     Route: 042
     Dates: start: 20220104
  3. IDELVION [Suspect]
     Active Substance: COAGULATION FACTOR IX RECOMBINANT HUMAN
     Dosage: 6545 INTERNATIONAL UNIT, QOW(STRENGTH:2000)
     Route: 042
     Dates: start: 202201
  4. IDELVION [Suspect]
     Active Substance: COAGULATION FACTOR IX RECOMBINANT HUMAN
     Dosage: 6545 INTERNATIONAL UNIT, QOW(STRENGTH:2000)
     Route: 042
     Dates: start: 202201
  5. IDELVION [Suspect]
     Active Substance: COAGULATION FACTOR IX RECOMBINANT HUMAN
     Dosage: 6545 INTERNATIONAL UNIT, QOW(STRENGTH:500)
     Route: 042
     Dates: start: 202201
  6. IDELVION [Suspect]
     Active Substance: COAGULATION FACTOR IX RECOMBINANT HUMAN
     Dosage: 6545 INTERNATIONAL UNIT, QOW(STRENGTH:500)
     Route: 042
     Dates: start: 202201
  7. IDELVION [Suspect]
     Active Substance: COAGULATION FACTOR IX RECOMBINANT HUMAN
     Indication: Factor IX deficiency
     Dosage: 6545 IU, QOW
     Route: 042
     Dates: start: 202201
  8. IDELVION [Suspect]
     Active Substance: COAGULATION FACTOR IX RECOMBINANT HUMAN
     Indication: Factor IX deficiency
     Dosage: 6545 IU, QOW
     Route: 042
     Dates: start: 202201

REACTIONS (2)
  - Haemarthrosis [Not Recovered/Not Resolved]
  - Unevaluable event [Unknown]
